FAERS Safety Report 5734681-7 (Version None)
Quarter: 2008Q2

REPORT INFORMATION
  Report Type: 
  Country: None (occurrence: None)
  Receive Date: 20080512
  Receipt Date: 20080506
  Transmission Date: 20081010
  Serious: Yes (Hospitalization)
  Sender: FDA-Public Use
  Company Number: US-ASTRAZENECA-2003UW02097

PATIENT
  Age: 85 Year
  Sex: Female

DRUGS (7)
  1. TOPROL-XL [Suspect]
     Indication: BLOOD PRESSURE
     Route: 048
  2. TOPROL-XL [Suspect]
     Route: 048
  3. COZAAR [Concomitant]
  4. ELAVIL [Concomitant]
     Route: 048
  5. PROTONIX [Concomitant]
  6. COLACE [Concomitant]
  7. LASIX [Concomitant]

REACTIONS (3)
  - ALOPECIA [None]
  - CARDIAC DISORDER [None]
  - NAIL DISORDER [None]
